FAERS Safety Report 5749974-7 (Version None)
Quarter: 2008Q2

REPORT INFORMATION
  Report Type: 
  Country: None (occurrence: None)
  Receive Date: 20080527
  Receipt Date: 20080514
  Transmission Date: 20081010
  Serious: Yes (Hospitalization, Other)
  Sender: FDA-Public Use
  Company Number: US-ELI_LILLY_AND_COMPANY-US200805003048

PATIENT
  Sex: Female

DRUGS (3)
  1. EVISTA [Suspect]
     Dosage: 60 MG, UNK
     Dates: end: 20031201
  2. EVISTA [Suspect]
     Dosage: 60 MG, UNK
     Dates: start: 20051201
  3. CALCIUM [Concomitant]
     Dosage: 1800 UNK, DAILY (1/D)

REACTIONS (10)
  - ANOREXIA [None]
  - ARTHRALGIA [None]
  - BACK INJURY [None]
  - BONE DENSITY DECREASED [None]
  - FALL [None]
  - FATIGUE [None]
  - FOOT FRACTURE [None]
  - MUSCULOSKELETAL PAIN [None]
  - NECROSIS [None]
  - TENDON RUPTURE [None]
